FAERS Safety Report 7088398-X (Version None)
Quarter: 2010Q4

REPORT INFORMATION
  Report Type: 
  Country: None (occurrence: None)
  Receive Date: 20101108
  Receipt Date: 20101028
  Transmission Date: 20110411
  Serious: Yes (Death, Hospitalization)
  Sender: FDA-Public Use
  Company Number: US-ROCHE-703888

PATIENT
  Sex: Female
  Weight: 59.4 kg

DRUGS (10)
  1. BEVACIZUMAB [Suspect]
     Indication: NON-SMALL CELL LUNG CANCER
     Dosage: DAY ONE OF EVERY 21 DAY
     Route: 042
     Dates: start: 20100420, end: 20100420
  2. PACLITAXEL [Suspect]
     Indication: NON-SMALL CELL LUNG CANCER
     Route: 050
     Dates: start: 20100420, end: 20100420
  3. CARBOPLATIN [Suspect]
     Indication: NON-SMALL CELL LUNG CANCER
     Dosage: 6 AUC , DAY ONE EVERY 21 DAY
     Route: 042
     Dates: start: 20100420, end: 20100420
  4. TEMAZEPAM [Concomitant]
  5. NEUPOGEN [Concomitant]
  6. AREDIA [Concomitant]
     Dates: start: 20100427
  7. OXYCODONE HCL AND ACETAMINOPHEN [Concomitant]
  8. OMEPRAZOLE [Concomitant]
  9. OLANZAPINE [Concomitant]
  10. PREDNISONE [Concomitant]

REACTIONS (22)
  - ASTHENIA [None]
  - BLOOD ALKALINE PHOSPHATASE INCREASED [None]
  - BLOOD MAGNESIUM DECREASED [None]
  - BLOOD SODIUM DECREASED [None]
  - DECUBITUS ULCER [None]
  - DEHYDRATION [None]
  - FAILURE TO THRIVE [None]
  - GAMMA-GLUTAMYLTRANSFERASE INCREASED [None]
  - HAEMOGLOBIN DECREASED [None]
  - HAEMORRHAGE [None]
  - HYPOKALAEMIA [None]
  - HYPOPHAGIA [None]
  - HYPOTENSION [None]
  - HYPOVOLAEMIA [None]
  - NAUSEA [None]
  - PULMONARY HAEMORRHAGE [None]
  - RENAL FAILURE [None]
  - SHOCK HAEMORRHAGIC [None]
  - THROMBOCYTOPENIA [None]
  - UNRESPONSIVE TO STIMULI [None]
  - URINARY TRACT INFECTION STAPHYLOCOCCAL [None]
  - VOMITING [None]
